FAERS Safety Report 19842973 (Version 1)
Quarter: 2021Q3

REPORT INFORMATION
  Report Type: Report from Study
  Country: US (occurrence: US)
  Receive Date: 20210917
  Receipt Date: 20210917
  Transmission Date: 20211014
  Serious: Yes (Death, Other)
  Sender: FDA-Public Use
  Company Number: US-ACADIA PHARMACEUTICALS INC.-ACA-2021-PIM-003278

PATIENT
  Sex: Male

DRUGS (12)
  1. KRILL OIL [Concomitant]
     Active Substance: DIETARY SUPPLEMENT\KRILL OIL
  2. PAXIL [PIROXICAM] [Concomitant]
     Active Substance: PIROXICAM
  3. AMPYRA [Concomitant]
     Active Substance: DALFAMPRIDINE
  4. AUBAGIO [Concomitant]
     Active Substance: TERIFLUNOMIDE
  5. OSTEO BI?FLEX [CHONDROITIN SULFATE;GLUCOSAMINE HYDROCHLORIDE] [Concomitant]
  6. NUPLAZID [Suspect]
     Active Substance: PIMAVANSERIN TARTRATE
     Indication: PARKINSON^S DISEASE
     Dosage: 34 MILLIGRAM, QD
     Route: 048
     Dates: start: 20210310
  7. CARBIDOPA/LEVODOPA [Concomitant]
     Active Substance: CARBIDOPA\LEVODOPA
  8. ASPIRIN. [Concomitant]
     Active Substance: ASPIRIN
  9. VITAMINS NOS [Concomitant]
     Active Substance: VITAMINS
  10. METOPROLOL SUCCINATE. [Concomitant]
     Active Substance: METOPROLOL SUCCINATE
  11. ZOCOR [Concomitant]
     Active Substance: SIMVASTATIN
  12. VITAMIN D3 [Concomitant]
     Active Substance: CHOLECALCIFEROL

REACTIONS (1)
  - Death [Fatal]
